FAERS Safety Report 12926409 (Version 1)
Quarter: 2016Q4

REPORT INFORMATION
  Report Type: Spontaneous
  Country: CN (occurrence: CN)
  Receive Date: 20161109
  Receipt Date: 20161109
  Transmission Date: 20170207
  Serious: Yes (Other)
  Sender: FDA-Public Use
  Company Number: CN-MUNDIPHARMA DS AND PHARMACOVIGILANCE-USA-2016-0134523

PATIENT
  Age: 68 Year
  Sex: Female

DRUGS (2)
  1. OXYCONTIN [Suspect]
     Active Substance: OXYCODONE HYDROCHLORIDE
     Dosage: UNK
     Route: 048
  2. OXYCONTIN [Suspect]
     Active Substance: OXYCODONE HYDROCHLORIDE
     Indication: PAIN
     Dosage: 30 MG, Q12H
     Route: 048

REACTIONS (10)
  - Hyperhidrosis [Recovered/Resolved]
  - Soliloquy [Unknown]
  - Tongue exfoliation [Unknown]
  - Pulse abnormal [Unknown]
  - Dry skin [Unknown]
  - Delirium [Unknown]
  - Hallucination, auditory [Recovering/Resolving]
  - Tongue discolouration [Unknown]
  - Asthenia [Unknown]
  - Poor quality sleep [Unknown]
